FAERS Safety Report 7353584-8 (Version None)
Quarter: 2011Q1

REPORT INFORMATION
  Report Type: 
  Country: None (occurrence: None)
  Receive Date: 20110315
  Receipt Date: 20110303
  Transmission Date: 20110831
  Serious: Yes (Other)
  Sender: FDA-Public Use
  Company Number: GB-SANOFI-AVENTIS-2011SA013449

PATIENT
  Age: 76 Year
  Sex: Male

DRUGS (12)
  1. DRONEDARONE [Suspect]
     Indication: ATRIAL FIBRILLATION
     Route: 048
     Dates: start: 20110210, end: 20110211
  2. ASPIRIN [Concomitant]
  3. BISOPROLOL FUMARATE [Concomitant]
  4. HYDROXYCHLOROQUINE [Concomitant]
  5. ISOSORBIDE MONONITRATE [Concomitant]
  6. FOLIC ACID [Concomitant]
  7. WARFARIN [Concomitant]
  8. FLUOXETINE [Concomitant]
  9. SPIRONOLACTONE [Concomitant]
  10. FLUVASTATIN [Concomitant]
  11. METHOTREXATE [Concomitant]
  12. OMEPRAZOLE [Concomitant]

REACTIONS (3)
  - HEPATIC CIRRHOSIS [None]
  - HEPATOCELLULAR INJURY [None]
  - OFF LABEL USE [None]
